FAERS Safety Report 9097226 (Version 1)
Quarter: 2013Q1

REPORT INFORMATION
  Report Type: Spontaneous
  Country: BR (occurrence: BR)
  Receive Date: 20130212
  Receipt Date: 20130212
  Transmission Date: 20140127
  Serious: Yes (Other)
  Sender: FDA-Public Use
  Company Number: BR-PFIZER INC-2013054859

PATIENT
  Age: 74 Year
  Sex: Female
  Weight: 58 kg

DRUGS (2)
  1. LYRICA [Suspect]
     Dosage: 75 MG, 1X/DAY
     Route: 048
     Dates: start: 20110208
  2. CYMBALTA [Concomitant]
     Indication: RELAXATION THERAPY
     Dosage: ONE CAPSULE DAILY
     Dates: start: 2011

REACTIONS (2)
  - Aneurysm [Unknown]
  - Weight increased [Unknown]
